FAERS Safety Report 5669999-X (Version None)
Quarter: 2008Q1

REPORT INFORMATION
  Report Type: 
  Country: None (occurrence: None)
  Receive Date: 20080317
  Receipt Date: 20080313
  Transmission Date: 20080703
  Serious: Yes (Hospitalization)
  Sender: FDA-Public Use
  Company Number: JP-BOEHRINGER INGELHEIM GMBH, GERMANY-2008-BP-03579NB

PATIENT
  Age: 80 Year
  Sex: Female

DRUGS (2)
  1. BI-SIFROL TABLETS [Suspect]
     Indication: PARKINSON'S DISEASE
     Route: 048
     Dates: start: 20080207, end: 20080221
  2. MADOPAR (LEVODOPA_BENSERAZIDE HYDROCHLORIDE) [Concomitant]
     Route: 065

REACTIONS (3)
  - CONTUSION [None]
  - FALL [None]
  - PLEURAL EFFUSION [None]
